FAERS Safety Report 11675668 (Version 2)
Quarter: 2016Q1

REPORT INFORMATION
  Report Type: Report from Study
  Country: DE (occurrence: DE)
  Receive Date: 20151028
  Receipt Date: 20160121
  Transmission Date: 20160525
  Serious: Yes (Other)
  Sender: FDA-Public Use
  Company Number: DE-BRISTOL-MYERS SQUIBB COMPANY-BMS-2015-072643

PATIENT
  Age: 75 Year
  Sex: Male
  Weight: 126 kg

DRUGS (1)
  1. APIXABAN [Suspect]
     Active Substance: APIXABAN
     Indication: CEREBROVASCULAR ACCIDENT PROPHYLAXIS
     Dosage: 5 MG, BID
     Route: 048
     Dates: start: 20140217, end: 20150730

REACTIONS (4)
  - Goitre [Unknown]
  - Thyroid fibrosis [Unknown]
  - Haemorrhage [Unknown]
  - Thyroid haemorrhage [Not Recovered/Not Resolved]

NARRATIVE: CASE EVENT DATE: 20150806
